FAERS Safety Report 21409608 (Version 7)
Quarter: 2025Q4

REPORT INFORMATION
  Report Type: Report from Study
  Country: JP (occurrence: JP)
  Receive Date: 20221004
  Receipt Date: 20251011
  Transmission Date: 20260118
  Serious: Yes (Hospitalization)
  Sender: ABBVIE
  Company Number: JP-ABBVIE-22K-087-4431226-00

PATIENT
  Age: 49 Year
  Sex: Male

DRUGS (2)
  1. SKYRIZI [Suspect]
     Active Substance: RISANKIZUMAB-RZAA
     Indication: Psoriasis
     Dosage: 150 MG/MONTH
     Route: 058
     Dates: start: 20200703, end: 20200728
  2. SKYRIZI [Suspect]
     Active Substance: RISANKIZUMAB-RZAA
     Dosage: 150 MG/ 3 MONTHS
     Route: 058
     Dates: start: 20200729

REACTIONS (3)
  - Appendicitis [Recovered/Resolved]
  - Eczema [Recovered/Resolved]
  - Dry skin [Recovered/Resolved]

NARRATIVE: CASE EVENT DATE: 20210119
